FAERS Safety Report 21007225 (Version 2)
Quarter: 2022Q4

REPORT INFORMATION
  Report Type: Report from Study
  Country: EG (occurrence: EG)
  Receive Date: 20220625
  Receipt Date: 20221027
  Transmission Date: 20230112
  Serious: Yes (Death, Hospitalization, Other)
  Sender: FDA-Public Use
  Company Number: EG-NOVARTISPH-NVSC2022EG143825

PATIENT
  Age: 75 Year
  Sex: Male

DRUGS (9)
  1. ENTRESTO [Suspect]
     Active Substance: SACUBITRIL\VALSARTAN
     Indication: Cardiac failure
     Dosage: 50 MG, BID
     Route: 048
     Dates: start: 20191101
  2. ENTRESTO [Suspect]
     Active Substance: SACUBITRIL\VALSARTAN
     Dosage: 150 MG (50 MG IN THE MORNING AND 100 MG, ONE IN THE MORNING AND 100MG IN THE EVENING, WITH INTERVAL
     Route: 048
  3. CARVEDILOL [Suspect]
     Active Substance: CARVEDILOL
     Indication: Blood pressure abnormal
     Dosage: UNK, UNKNOWN (STOPPED IN JULY)
     Route: 048
  4. ALZMENDA [Concomitant]
     Indication: Cerebral disorder
     Dosage: UNK, UNKNOWN
     Route: 048
  5. MOODAPEX [Concomitant]
     Indication: Cerebral disorder
     Dosage: UNK, UNKNOWN
     Route: 048
  6. LANTUS [Concomitant]
     Active Substance: INSULIN GLARGINE
     Indication: Diabetes mellitus
     Dosage: 30 DOSAGE FORM, QD (VIA PEN)
     Route: 065
  7. QUITAPEX [Concomitant]
     Indication: Cerebral disorder
     Dosage: UNK, UNKNOWN
     Route: 048
  8. ASPIRIN [Concomitant]
     Active Substance: ASPIRIN
     Indication: Anticoagulant therapy
     Dosage: UNK, QD
     Route: 048
  9. PLAVIX [Concomitant]
     Active Substance: CLOPIDOGREL BISULFATE
     Indication: Anticoagulant therapy
     Dosage: UNK, QD
     Route: 048

REACTIONS (18)
  - Respiratory arrest [Fatal]
  - Hypotension [Unknown]
  - Cardiac arrest [Recovering/Resolving]
  - Cerebrovascular accident [Unknown]
  - Dysphagia [Unknown]
  - Movement disorder [Unknown]
  - Hypertension [Unknown]
  - Dehydration [Unknown]
  - Pneumonia [Unknown]
  - Heart rate decreased [Unknown]
  - Renal impairment [Unknown]
  - Dementia Alzheimer^s type [Unknown]
  - Cardiac disorder [Unknown]
  - Heart rate irregular [Unknown]
  - Blood potassium decreased [Unknown]
  - Blood creatinine increased [Unknown]
  - Blood urea increased [Unknown]
  - Incorrect dose administered [Unknown]

NARRATIVE: CASE EVENT DATE: 20221022
